FAERS Safety Report 10527967 (Version 1)
Quarter: 2014Q4

REPORT INFORMATION
  Report Type: Spontaneous
  Country: US (occurrence: None)
  Receive Date: 20141017
  Receipt Date: 20141017
  Transmission Date: 20150528
  Serious: Yes (Life-Threatening, Hospitalization, Disabling)
  Sender: FDA-Public Use
  Company Number: None

PATIENT
  Age: 60 Year
  Sex: Male
  Weight: 106.6 kg

DRUGS (2)
  1. ASPIRIN 81 MG [Concomitant]
     Active Substance: ASPIRIN
  2. RISPERIDONE 2MG TABLETS ZYDUS PHARM [Suspect]
     Active Substance: RISPERIDONE
     Indication: PRODUCT USED FOR UNKNOWN INDICATION
     Dosage: 3 TABLETS/DAILY
     Route: 048
     Dates: start: 20130509

REACTIONS (7)
  - Anxiety [None]
  - Stress [None]
  - Hypoglycaemia [None]
  - Blood bilirubin increased [None]
  - Cerebrovascular accident [None]
  - Asthenia [None]
  - Blood albumin increased [None]
